FAERS Safety Report 12218251 (Version 2)
Quarter: 2016Q2

REPORT INFORMATION
  Report Type: Spontaneous
  Country: UA (occurrence: UA)
  Receive Date: 20160329
  Receipt Date: 20160411
  Transmission Date: 20160815
  Serious: Yes (Life-Threatening)
  Sender: FDA-Public Use
  Company Number: UA-ASTRAZENECA-2016SE31927

PATIENT
  Age: 61 Year
  Sex: Male

DRUGS (5)
  1. HEPARIN [Concomitant]
     Active Substance: HEPARIN SODIUM
     Indication: HAEMODILUTION
  2. ARIXTRA [Concomitant]
     Active Substance: FONDAPARINUX SODIUM
     Indication: HAEMODILUTION
  3. BRILINTA [Suspect]
     Active Substance: TICAGRELOR
     Indication: ACUTE CORONARY SYNDROME
     Route: 048
     Dates: start: 20160303
  4. FLENOX [Concomitant]
     Indication: HAEMODILUTION
  5. ENOXAPARIN [Concomitant]
     Active Substance: ENOXAPARIN

REACTIONS (1)
  - Vascular stent thrombosis [Recovered/Resolved]

NARRATIVE: CASE EVENT DATE: 20160312
